FAERS Safety Report 7055658-8 (Version None)
Quarter: 2010Q4

REPORT INFORMATION
  Report Type: 
  Country: None (occurrence: None)
  Receive Date: 20101021
  Receipt Date: 20101014
  Transmission Date: 20110411
  Serious: Yes (Other)
  Sender: FDA-Public Use
  Company Number: FR-EISAI INC.-E3810-04153-SPO-FR

PATIENT
  Age: 69 Year
  Sex: Female

DRUGS (1)
  1. PARIET (RABEPRAZOLE) [Suspect]
     Route: 048
     Dates: start: 20100805

REACTIONS (8)
  - BALANCE DISORDER [None]
  - COUGH [None]
  - FEELING OF BODY TEMPERATURE CHANGE [None]
  - HEADACHE [None]
  - MYALGIA [None]
  - PAIN [None]
  - SUICIDE ATTEMPT [None]
  - VISUAL IMPAIRMENT [None]
